FAERS Safety Report 22282936 (Version 1)
Quarter: 2023Q2

REPORT INFORMATION
  Report Type: Spontaneous
  Country: CA (occurrence: CA)
  Receive Date: 20230504
  Receipt Date: 20230504
  Transmission Date: 20230721
  Serious: Yes (Disabling)
  Sender: FDA-Public Use
  Company Number: None

PATIENT
  Age: 90 Year
  Sex: Female

DRUGS (1)
  1. APIXABAN [Suspect]
     Active Substance: APIXABAN
     Indication: Atrial fibrillation
     Dosage: 2 EVERY 1 DAYS
     Route: 048

REACTIONS (4)
  - Blister [Recovered/Resolved]
  - Cyanosis [Recovered/Resolved]
  - Pain [Recovered/Resolved]
  - Peripheral coldness [Recovered/Resolved]
